FAERS Safety Report 8549852-4 (Version None)
Quarter: 2012Q3

REPORT INFORMATION
  Report Type: 
  Country: None (occurrence: None)
  Receive Date: 20120730
  Receipt Date: 20110630
  Transmission Date: 20120928
  Serious: No
  Sender: FDA-Public Use
  Company Number: US-GLAXOSMITHKLINE-A0933998A

PATIENT
  Sex: Female

DRUGS (3)
  1. INDOCIN [Concomitant]
  2. PRILOSEC [Concomitant]
  3. SUMATRIPTAN SUCCINATE [Suspect]
     Indication: MIGRAINE
     Route: 065

REACTIONS (1)
  - DRUG INEFFECTIVE [None]
